FAERS Safety Report 8466140-5 (Version None)
Quarter: 2012Q2

REPORT INFORMATION
  Report Type: 
  Country: None (occurrence: None)
  Receive Date: 20120626
  Receipt Date: 20120613
  Transmission Date: 20120825
  Serious: Yes (Hospitalization)
  Sender: FDA-Public Use
  Company Number: DE-ASTRAZENECA-2012SE40059

PATIENT
  Age: 31 Year
  Sex: Female

DRUGS (6)
  1. SEROQUEL [Suspect]
     Route: 048
     Dates: start: 20120213
  2. ZYPREXA [Suspect]
     Route: 048
     Dates: start: 20090101
  3. SEROQUEL [Suspect]
     Route: 048
     Dates: start: 20120215, end: 20120228
  4. PANTOPRAZOLE [Concomitant]
     Route: 048
     Dates: start: 20120124
  5. DIAZEPAM [Concomitant]
     Route: 048
     Dates: start: 20120215
  6. MOVIPREP [Concomitant]
     Dosage: UNKNOWN DOSE DAILY
     Route: 048
     Dates: start: 20120124

REACTIONS (1)
  - ELECTROCARDIOGRAM QT PROLONGED [None]
